FAERS Safety Report 24686864 (Version 1)
Quarter: 2024Q4

REPORT INFORMATION
  Report Type: Spontaneous
  Country: RS (occurrence: RS)
  Receive Date: 20241202
  Receipt Date: 20241202
  Transmission Date: 20250115
  Serious: Yes (Other)
  Sender: MYLAN
  Company Number: RS-MYLANLABS-2024M1106204

PATIENT
  Sex: Male
  Weight: 65 kg

DRUGS (1)
  1. ZOLOFT [Suspect]
     Active Substance: SERTRALINE HYDROCHLORIDE
     Indication: Tinnitus
     Dosage: 50 MILLIGRAM, QD
     Route: 048
     Dates: start: 20240802, end: 20241022

REACTIONS (3)
  - Heart rate irregular [Recovered/Resolved]
  - Ventricular extrasystoles [Recovered/Resolved]
  - Fatigue [Recovered/Resolved]

NARRATIVE: CASE EVENT DATE: 20240802
